FAERS Safety Report 25076058 (Version 1)
Quarter: 2025Q1

REPORT INFORMATION
  Report Type: Spontaneous
  Country: RU (occurrence: RU)
  Receive Date: 20250313
  Receipt Date: 20250313
  Transmission Date: 20250409
  Serious: Yes (Other)
  Sender: ROCHE
  Company Number: RU-ROCHE-10000223473

PATIENT
  Age: 24 Year
  Sex: Female

DRUGS (4)
  1. TRASTUZUMAB [Suspect]
     Active Substance: TRASTUZUMAB
     Indication: Breast cancer
     Route: 065
     Dates: end: 20240227
  2. PERTUZUMAB [Suspect]
     Active Substance: PERTUZUMAB
     Indication: Breast cancer
     Route: 065
     Dates: end: 20240227
  3. ADO-TRASTUZUMAB EMTANSINE [Suspect]
     Active Substance: ADO-TRASTUZUMAB EMTANSINE
     Indication: Breast cancer
     Route: 065
     Dates: start: 20240514, end: 20241008
  4. DOCETAXEL [Suspect]
     Active Substance: DOCETAXEL
     Indication: Breast cancer
     Route: 065

REACTIONS (15)
  - Leukopenia [Unknown]
  - Neutropenia [Unknown]
  - Stomatitis [Unknown]
  - Mucosal dryness [Unknown]
  - Dermatitis acneiform [Unknown]
  - Amenorrhoea [Unknown]
  - Alopecia [Unknown]
  - Metastases to lung [Unknown]
  - Paranasal sinus inflammation [Unknown]
  - Lymphoid tissue hyperplasia [Unknown]
  - Haemangioma [Unknown]
  - Enostosis [Unknown]
  - Ovarian enlargement [Unknown]
  - Ovarian cyst [Unknown]
  - Maternal exposure during pregnancy [Unknown]
